FAERS Safety Report 23554223 (Version 1)
Quarter: 2024Q1

REPORT INFORMATION
  Report Type: Report from Study
  Country: US (occurrence: None)
  Receive Date: 20240222
  Receipt Date: 20240222
  Transmission Date: 20240409
  Serious: Yes (Other)
  Sender: FDA-Public Use
  Company Number: 2024A040210

PATIENT
  Sex: Female

DRUGS (1)
  1. TAGRISSO [Suspect]
     Active Substance: OSIMERTINIB
     Indication: Non-small cell lung cancer
     Route: 048
     Dates: start: 20220301

REACTIONS (14)
  - Atrial fibrillation [Unknown]
  - Pulmonary calcification [Unknown]
  - Neoplasm [Unknown]
  - Fatigue [Unknown]
  - Diarrhoea [Unknown]
  - Flatulence [Unknown]
  - Muscle spasms [Unknown]
  - Spider vein [Unknown]
  - Pain in extremity [Unknown]
  - Neuralgia [Unknown]
  - Nail disorder [Unknown]
  - Onychoclasis [Unknown]
  - Onycholysis [Unknown]
  - Nail bed infection [Unknown]
